FAERS Safety Report 8195688-6 (Version None)
Quarter: 2012Q1

REPORT INFORMATION
  Report Type: 
  Country: None (occurrence: None)
  Receive Date: 20120308
  Receipt Date: 20120305
  Transmission Date: 20120608
  Serious: Yes (Other)
  Sender: FDA-Public Use
  Company Number: US-PFIZER INC-2012058694

PATIENT
  Sex: Female
  Weight: 75.74 kg

DRUGS (12)
  1. LYRICA [Suspect]
     Indication: FIBROMYALGIA
     Dosage: 125 MG, 2X/DAY
     Route: 048
     Dates: start: 20060101, end: 20120101
  2. LISINOPRIL AND HYDROCHLOROTHIAZIDE [Suspect]
     Indication: HYPERTENSION
     Dosage: 20/25 MG, DAILY
  3. PRAVASTATIN SODIUM [Concomitant]
     Indication: BLOOD TRIGLYCERIDES ABNORMAL
     Dosage: 40 MG, DAILY
  4. HYDROCODONE [Concomitant]
     Indication: PAIN
     Dosage: 7.5/500 MG FOUR TIMES A DAY
  5. AZULFIDINE [Concomitant]
     Indication: RHEUMATOID ARTHRITIS
     Dosage: 1000 MG, 2X/DAY
     Route: 048
  6. CYMBALTA [Concomitant]
     Indication: FIBROMYALGIA
  7. METOPROLOL [Concomitant]
     Indication: HYPERTENSION
     Dosage: 50 MG, 2X/DAY
  8. LISINOPRIL [Suspect]
     Indication: HYPERTENSION
     Dosage: 20 MG, DAILY
  9. CYMBALTA [Concomitant]
     Indication: DEPRESSION
     Dosage: 60 MG, DAILY
     Route: 048
  10. TEMAZEPAM [Concomitant]
     Indication: SLEEP DISORDER
     Dosage: 30 MG, DAILY
  11. MELOXICAM [Suspect]
     Indication: RHEUMATOID ARTHRITIS
     Dosage: 7.5 MG, 2X/DAY
     Dates: end: 20111215
  12. CLONIDINE HYDROCHLORIDE [Concomitant]
     Indication: HYPERTENSION
     Dosage: 0.2 MG, DAILY

REACTIONS (2)
  - RENAL DISORDER [None]
  - PAIN [None]
